FAERS Safety Report 15456641 (Version 2)
Quarter: 2019Q2

REPORT INFORMATION
  Report Type: Report from Study
  Country: ZA (occurrence: ZA)
  Receive Date: 20181002
  Receipt Date: 20190514
  Transmission Date: 20190711
  Serious: Yes (Other)
  Sender: FDA-Public Use
  Company Number: ZA-SA-2018SA269574

PATIENT
  Age: 74 Year
  Sex: Female

DRUGS (11)
  1. INSULIN GLARGINE [Suspect]
     Active Substance: INSULIN GLARGINE
     Indication: TYPE 2 DIABETES MELLITUS
     Dosage: 10 U, QD (NIGHT)
     Dates: start: 20180925
  2. AMLOC [AMLODIPINE BESILATE] [Concomitant]
     Active Substance: AMLODIPINE BESYLATE
     Dosage: AB-10 MG
     Dates: start: 20181010
  3. AMLOC [AMLODIPINE BESILATE] [Concomitant]
     Active Substance: AMLODIPINE BESYLATE
     Dosage: AB-10 MG
     Dates: start: 20181020
  4. ECOTRIN [Concomitant]
     Active Substance: ASPIRIN
     Dosage: AB-81 MG
     Dates: start: 20181010
  5. LOSARTAN UNICORN [Concomitant]
     Dosage: AB-500 MG
     Dates: start: 20181020
  6. ECOTRIN [Concomitant]
     Active Substance: ASPIRIN
     Dosage: AB- 81 MG
     Dates: start: 20181020
  7. SAXAGLIPTIN [Concomitant]
     Active Substance: SAXAGLIPTIN
     Dosage: AB-5 MG
     Dates: start: 20190404
  8. ASPAVOR [Concomitant]
     Active Substance: ATORVASTATIN
     Dosage: BT-10 MG
     Dates: start: 20181020
  9. ARCOXIA [Concomitant]
     Active Substance: ETORICOXIB
     Dosage: AB- 90 MG
     Dates: start: 20181013
  10. ASPAVOR [Concomitant]
     Active Substance: ATORVASTATIN
     Dosage: AB-10 MG
     Dates: start: 20181010
  11. OPTISULIN (INSULIN GLARGINE) [Suspect]
     Active Substance: INSULIN GLARGINE
     Dosage: BL-6 UNIT
     Dates: start: 20181101

REACTIONS (3)
  - Dry throat [Not Recovered/Not Resolved]
  - Abdominal pain upper [Not Recovered/Not Resolved]
  - Neuropathy peripheral [Unknown]

NARRATIVE: CASE EVENT DATE: 20190502
